FAERS Safety Report 22269084 (Version 1)
Quarter: 2023Q2

REPORT INFORMATION
  Report Type: Spontaneous
  Country: GB (occurrence: GB)
  Receive Date: 20230501
  Receipt Date: 20230501
  Transmission Date: 20230722
  Serious: Yes (Other)
  Sender: FDA-Public Use
  Company Number: None

PATIENT

DRUGS (2)
  1. PREDNISOLONE [Suspect]
     Active Substance: PREDNISOLONE
     Dosage: UNK
  2. SARS-COV-2 [Suspect]
     Active Substance: SARS-COV-2
     Indication: COVID-19 immunisation

REACTIONS (5)
  - Gingival bleeding [Unknown]
  - Immune system disorder [Unknown]
  - Pain [Unknown]
  - Feeding disorder [Unknown]
  - Female reproductive tract disorder [Unknown]

NARRATIVE: CASE EVENT DATE: 20200401
